FAERS Safety Report 6337349-1 (Version None)
Quarter: 2009Q3

REPORT INFORMATION
  Report Type: 
  Country: None (occurrence: None)
  Receive Date: 20090901
  Receipt Date: 20090901
  Transmission Date: 20100115
  Serious: Yes (Other)
  Sender: FDA-Public Use
  Company Number: None

PATIENT
  Age: 81 Year
  Sex: Female
  Weight: 60.782 kg

DRUGS (2)
  1. PREDNISOLONE TAB [Suspect]
     Indication: RHEUMATOID ARTHRITIS
     Dosage: 10 MG (BAD WEATHER 2X DAY ORAL 5 MG GOOD WEATHER 2X DAY ORAL
     Route: 048
     Dates: start: 20080520
  2. PREDNISOLONE TAB [Suspect]
     Indication: RHEUMATOID ARTHRITIS
     Dosage: 10 MG (BAD WEATHER 2X DAY ORAL 5 MG GOOD WEATHER 2X DAY ORAL
     Route: 048
     Dates: start: 20090818

REACTIONS (6)
  - ARTIFICIAL CROWN PROCEDURE [None]
  - DENTAL CARIES [None]
  - DRY MOUTH [None]
  - ORAL DISORDER [None]
  - TOOTH LOSS [None]
  - TOOTH REPAIR [None]
